FAERS Safety Report 15699631 (Version 1)
Quarter: 2018Q4

REPORT INFORMATION
  Report Type: Report from Study
  Country: None (occurrence: BE)
  Receive Date: 20181207
  Receipt Date: 20181207
  Transmission Date: 20190205
  Serious: Yes (Hospitalization)
  Sender: FDA-Public Use
  Company Number: BE-ABBVIE-18S-013-2578740-00

PATIENT
  Sex: Male

DRUGS (9)
  1. SIPRALEXA [Concomitant]
     Active Substance: ESCITALOPRAM OXALATE
     Indication: PRODUCT USED FOR UNKNOWN INDICATION
     Route: 065
  2. TRAZODONE [Concomitant]
     Active Substance: TRAZODONE HYDROCHLORIDE
     Indication: PRODUCT USED FOR UNKNOWN INDICATION
     Route: 065
  3. PANTOMED (PANTOPRAZOLE SODIUM SESQUIHYDRATE) [Concomitant]
     Active Substance: PANTOPRAZOLE SODIUM
     Indication: PRODUCT USED FOR UNKNOWN INDICATION
     Route: 065
  4. PROLOPA 250 [Concomitant]
     Indication: PRODUCT USED FOR UNKNOWN INDICATION
     Dosage: FORM STRENGTH: 200MG/50MG; UNIT DOSE: 0.5 TABLET 4 TIME/DAY + EVERY 4HOURS IF NEEDED
     Route: 048
  5. DUODOPA [Suspect]
     Active Substance: CARBIDOPA\LEVODOPA
     Indication: PARKINSON^S DISEASE
     Dosage: DOSAGES UNKNOWN
     Route: 050
     Dates: start: 20170529, end: 20170530
  6. DUODOPA [Suspect]
     Active Substance: CARBIDOPA\LEVODOPA
     Dosage: DOSES CONTINUOUSLY MONITORED AND ADAPTED
     Route: 050
     Dates: start: 20170622, end: 20170728
  7. DUODOPA [Suspect]
     Active Substance: CARBIDOPA\LEVODOPA
     Dosage: MD= 4ML  CD= 3.4ML/HR DURING 16HRS  ED= 3.2ML
     Route: 050
     Dates: start: 20170728
  8. PROLOPA 250 [Concomitant]
     Dosage: FORM STRENGTH: 200MG/50MG; UNIT DOSE: 0.5 TABLET
     Route: 048
  9. DUODOPA [Suspect]
     Active Substance: CARBIDOPA\LEVODOPA
     Dosage: MD= 4ML  CD= 2.7ML/HR DURING 16HRS  ED= 2.5ML
     Route: 050
     Dates: start: 20170530, end: 20170622

REACTIONS (1)
  - Bronchitis [Unknown]
